FAERS Safety Report 13597646 (Version 2)
Quarter: 2017Q2

REPORT INFORMATION
  Report Type: Spontaneous
  Country: FR (occurrence: FR)
  Receive Date: 20170531
  Receipt Date: 20170608
  Transmission Date: 20170830
  Serious: Yes (Life-Threatening)
  Sender: FDA-Public Use
  Company Number: FR-009507513-1705FRA011498

PATIENT
  Age: 88 Year
  Sex: Female

DRUGS (9)
  1. CORTANCYL [Suspect]
     Active Substance: PREDNISONE
     Indication: DERMATITIS BULLOUS
     Dosage: 25 MG, QD
     Route: 048
     Dates: start: 20170421, end: 2017
  2. COAPROVEL [Concomitant]
     Active Substance: HYDROCHLOROTHIAZIDE\IRBESARTAN
     Dosage: UNK
  3. KALEORID [Concomitant]
     Active Substance: POTASSIUM CHLORIDE
     Dosage: UNK
  4. DIPROSONE [Suspect]
     Active Substance: BETAMETHASONE DIPROPIONATE
     Indication: ECZEMA
     Dosage: UNK
     Route: 061
     Dates: start: 201704, end: 2017
  5. DERMOVAL (BETAMETHASONE VALERATE) [Suspect]
     Active Substance: BETAMETHASONE VALERATE
     Indication: DERMATITIS BULLOUS
     Dosage: 30 G, QD
     Route: 061
     Dates: start: 20170419, end: 20170425
  6. CALCIDOSE VITAMINE D [Concomitant]
     Active Substance: CALCIUM\CHOLECALCIFEROL
     Dosage: UNK
  7. EFFERALGAN [Concomitant]
     Active Substance: ACETAMINOPHEN
     Dosage: UNK
  8. SOTALEX [Concomitant]
     Active Substance: SOTALOL
     Dosage: UNK
  9. UVEDOSE [Concomitant]
     Active Substance: CHOLECALCIFEROL
     Dosage: UNK

REACTIONS (2)
  - Septic shock [Recovering/Resolving]
  - Necrotising soft tissue infection [Recovering/Resolving]

NARRATIVE: CASE EVENT DATE: 20170426
